FAERS Safety Report 4940349-7 (Version None)
Quarter: 2006Q1

REPORT INFORMATION
  Report Type: 
  Country: None (occurrence: None)
  Receive Date: 20060310
  Receipt Date: 20050719
  Transmission Date: 20060701
  Serious: Yes (Hospitalization)
  Sender: FDA-Public Use
  Company Number: US-MERCK-0507USA02788

PATIENT
  Age: 46 Year
  Sex: Male
  Weight: 130 kg

DRUGS (6)
  1. VIOXX [Suspect]
     Indication: MONARTHRITIS
     Route: 048
     Dates: start: 20000504, end: 20000101
  2. VIOXX [Suspect]
     Route: 048
     Dates: start: 20030924, end: 20040910
  3. VIOXX [Suspect]
     Route: 048
     Dates: start: 20000504, end: 20000101
  4. VIOXX [Suspect]
     Route: 048
     Dates: start: 20030924, end: 20040910
  5. ASPIRIN [Concomitant]
     Route: 065
  6. ALTACE [Concomitant]
     Route: 048

REACTIONS (5)
  - ACUTE MYOCARDIAL INFARCTION [None]
  - CHEST PAIN [None]
  - CORONARY ARTERY DISEASE [None]
  - HYPERLIPIDAEMIA [None]
  - VENTRICULAR DYSFUNCTION [None]
